FAERS Safety Report 6898955-9 (Version None)
Quarter: 2010Q3

REPORT INFORMATION
  Report Type: 
  Country: None (occurrence: None)
  Receive Date: 20100802
  Receipt Date: 20071205
  Transmission Date: 20110219
  Serious: No
  Sender: FDA-Public Use
  Company Number: US-PFIZER INC-2007084076

PATIENT
  Sex: Female
  Weight: 66.2 kg

DRUGS (6)
  1. LYRICA [Suspect]
     Indication: FIBROMYALGIA
     Route: 048
     Dates: start: 20060101
  2. ESTRACE [Concomitant]
  3. DICYCLOMINE [Concomitant]
  4. SYNTHROID [Concomitant]
     Indication: THYROID DISORDER
  5. FLUTICASONE [Concomitant]
  6. TYLENOL [Concomitant]

REACTIONS (2)
  - BLOOD CHOLESTEROL DECREASED [None]
  - LOCAL SWELLING [None]
